FAERS Safety Report 13030577 (Version 1)
Quarter: 2016Q4

REPORT INFORMATION
  Report Type: Spontaneous
  Country: US (occurrence: US)
  Receive Date: 20161214
  Receipt Date: 20161214
  Transmission Date: 20170207
  Serious: Yes (Other)
  Sender: FDA-Public Use
  Company Number: None

PATIENT
  Age: 26 Year
  Sex: Female
  Weight: 68.1 kg

DRUGS (2)
  1. TYLENOL WITH CODEINE [Concomitant]
     Active Substance: ACETAMINOPHEN\CODEINE PHOSPHATE
  2. MIRENA [Suspect]
     Active Substance: LEVONORGESTREL

REACTIONS (1)
  - Ovarian cyst [None]

NARRATIVE: CASE EVENT DATE: 20161211
